FAERS Safety Report 4937371-3 (Version None)
Quarter: 2006Q1

REPORT INFORMATION
  Report Type: 
  Country: None (occurrence: None)
  Receive Date: 20060309
  Receipt Date: 20060228
  Transmission Date: 20060701
  Serious: Yes (Hospitalization, Other)
  Sender: FDA-Public Use
  Company Number: PHRM2006FR00918

PATIENT
  Age: 77 Year
  Sex: Male

DRUGS (10)
  1. OMEPRAZOLE [Suspect]
     Dosage: 10 MG/DAY
     Route: 048
     Dates: end: 20051118
  2. ZOCOR [Suspect]
     Dosage: 40 MG/DAY
     Route: 048
     Dates: end: 20051118
  3. NEURONTIN [Suspect]
     Indication: EPILEPSY
     Dosage: 400 MG, TID
     Route: 048
     Dates: start: 20051110, end: 20051121
  4. MEDROL [Suspect]
     Indication: EPILEPSY
     Dosage: 32 MG/DAY
     Route: 048
     Dates: start: 20051110, end: 20051119
  5. MEDROL [Suspect]
     Dosage: 16 MG/DAY
     Route: 048
     Dates: start: 20051120, end: 20051127
  6. ASPEGIC 1000 [Suspect]
     Dosage: 1 DF/DAY
     Route: 048
     Dates: end: 20051118
  7. UN-ALFA [Suspect]
     Dosage: 0.25 UG/DAY
     Route: 048
     Dates: end: 20051101
  8. ADANCOR [Concomitant]
     Dosage: 10 MG, BID
     Route: 048
  9. LEVOTHYROX [Concomitant]
     Dosage: 50 UG/DAY
     Route: 048
  10. EXELON [Suspect]
     Dosage: 4.5 MG, BID
     Route: 048
     Dates: end: 20051118

REACTIONS (5)
  - ABNORMAL BEHAVIOUR [None]
  - ANXIETY [None]
  - DELUSION [None]
  - EPILEPSY [None]
  - SUBDURAL HAEMATOMA [None]
